FAERS Safety Report 5411211-0 (Version None)
Quarter: 2007Q3

REPORT INFORMATION
  Report Type: 
  Country: None (occurrence: None)
  Receive Date: 20070810
  Receipt Date: 20070802
  Transmission Date: 20080115
  Serious: Yes (Hospitalization, Other)
  Sender: FDA-Public Use
  Company Number: B0473097A

PATIENT
  Age: 74 Year
  Sex: Female
  Weight: 90 kg

DRUGS (6)
  1. ARIXTRA [Suspect]
     Indication: VENOUS THROMBOSIS LIMB
     Dosage: 7.5MG PER DAY
     Route: 058
     Dates: start: 20070118, end: 20070126
  2. LIPANTHYL [Concomitant]
     Indication: HYPERCHOLESTEROLAEMIA
     Route: 048
  3. SECTRAL [Concomitant]
     Indication: ARRHYTHMIA
     Dosage: 200MG PER DAY
     Route: 048
  4. FLECAINIDE ACETATE [Concomitant]
     Indication: ARRHYTHMIA
     Route: 048
  5. OMEPRAZOLE [Concomitant]
     Indication: GASTRITIS
     Dosage: 20MG PER DAY
     Route: 048
  6. SERESTA [Concomitant]
     Indication: ANXIETY
     Dosage: 10MG PER DAY
     Route: 048

REACTIONS (4)
  - HAEMATOMA [None]
  - HAEMOGLOBIN DECREASED [None]
  - SHOCK [None]
  - TRAUMATIC HAEMATOMA [None]
